FAERS Safety Report 7063381-9 (Version None)
Quarter: 2010Q4

REPORT INFORMATION
  Report Type: 
  Country: None (occurrence: None)
  Receive Date: 20101026
  Receipt Date: 20100721
  Transmission Date: 20110411
  Serious: Yes (Other)
  Sender: FDA-Public Use
  Company Number: US-PFIZER INC-2010082958

PATIENT
  Sex: Male
  Weight: 77.1 kg

DRUGS (2)
  1. LIPITOR [Suspect]
     Indication: BLOOD CHOLESTEROL INCREASED
     Dosage: 20 MG, 1X/DAY
     Route: 048
  2. TOPROL-XL [Concomitant]
     Indication: SYSTOLIC HYPERTENSION
     Dosage: 25 MG, 1X/DAY
     Route: 048

REACTIONS (7)
  - ARTHRALGIA [None]
  - BONE PAIN [None]
  - JOINT SWELLING [None]
  - LIMB DISCOMFORT [None]
  - MUSCULAR WEAKNESS [None]
  - MYALGIA [None]
  - NIPPLE PAIN [None]
